FAERS Safety Report 25996956 (Version 2)
Quarter: 2025Q4

REPORT INFORMATION
  Report Type: Spontaneous
  Country: JP (occurrence: JP)
  Receive Date: 20251104
  Receipt Date: 20251111
  Transmission Date: 20260118
  Serious: Yes (Other)
  Sender: ALEXION PHARMACEUTICALS
  Company Number: JP-ASTRAZENECA-220062233_011620_P_1

PATIENT
  Age: 52 Year
  Sex: Female
  Weight: 50 kg

DRUGS (2)
  1. LYNPARZA [Suspect]
     Active Substance: OLAPARIB
     Indication: Ovarian cancer recurrent
     Dosage: 300 MILLIGRAM, QD
     Dates: start: 20200807
  2. LYNPARZA [Suspect]
     Active Substance: OLAPARIB
     Dosage: 250 MILLIGRAM, QD
     Dates: start: 20201113

REACTIONS (7)
  - Myelosuppression [Recovering/Resolving]
  - Neutrophil count decreased [Recovering/Resolving]
  - Depressive symptom [Recovering/Resolving]
  - Apathy [Recovering/Resolving]
  - Dizziness [Recovering/Resolving]
  - Nausea [Recovering/Resolving]
  - Decreased appetite [Recovering/Resolving]

NARRATIVE: CASE EVENT DATE: 20200801
